FAERS Safety Report 12495275 (Version 1)
Quarter: 2016Q2

REPORT INFORMATION
  Report Type: Spontaneous
  Country: US (occurrence: None)
  Receive Date: 20160623
  Receipt Date: 20160623
  Transmission Date: 20160815
  Serious: Yes (Hospitalization)
  Sender: FDA-Public Use
  Company Number: None

PATIENT
  Age: 43 Year
  Sex: Female

DRUGS (15)
  1. LANSOPRAZOLE. [Concomitant]
     Active Substance: LANSOPRAZOLE
  2. LORAZAPAM [Concomitant]
     Active Substance: LORAZEPAM
  3. LEVOFLOXACIN. [Concomitant]
     Active Substance: LEVOFLOXACIN
  4. SULFAMETHOXAZOLE/TRIMETHOPRIM [Suspect]
     Active Substance: SULFAMETHOXAZOLE\TRIMETHOPRIM
  5. BECLOMETHASONE [Concomitant]
     Active Substance: BECLOMETHASONE
  6. HYDROCORTISONE. [Concomitant]
     Active Substance: HYDROCORTISONE
  7. CLONAZEPAM. [Concomitant]
     Active Substance: CLONAZEPAM
  8. MAGNESIUM OXIDE. [Concomitant]
     Active Substance: MAGNESIUM OXIDE
  9. VENLAFAXINE [Concomitant]
     Active Substance: VENLAFAXINE HYDROCHLORIDE
  10. ISAVUCONAZONIUM SULFATE [Concomitant]
     Active Substance: ISAVUCONAZONIUM SULFATE
  11. VITAMIN C [Suspect]
     Active Substance: ASCORBIC ACID
  12. TACROLIMUS. [Suspect]
     Active Substance: TACROLIMUS
     Indication: STEM CELL TRANSPLANT
     Route: 048
     Dates: start: 20160101, end: 20160404
  13. DRONABINOL. [Concomitant]
     Active Substance: DRONABINOL
  14. PREDNISONE. [Suspect]
     Active Substance: PREDNISONE
  15. TEMAZEPAM. [Concomitant]
     Active Substance: TEMAZEPAM

REACTIONS (4)
  - Graft versus host disease in gastrointestinal tract [None]
  - Posterior reversible encephalopathy syndrome [None]
  - Graft versus host disease in skin [None]
  - Vasculitis [None]

NARRATIVE: CASE EVENT DATE: 20160421
